FAERS Safety Report 5717229-2 (Version None)
Quarter: 2008Q2

REPORT INFORMATION
  Report Type: 
  Country: None (occurrence: None)
  Receive Date: 20080424
  Receipt Date: 20080418
  Transmission Date: 20081010
  Serious: Yes (Other)
  Sender: FDA-Public Use
  Company Number: US-PFIZER INC-2008035144

PATIENT

DRUGS (1)
  1. SUTENT [Suspect]

REACTIONS (1)
  - DIVERTICULITIS [None]
